APPROVED DRUG PRODUCT: NAPROXEN SODIUM
Active Ingredient: NAPROXEN SODIUM
Strength: EQ 250MG BASE
Dosage Form/Route: TABLET;ORAL
Application: A076544 | Product #001
Applicant: ABLE LABORATORIES INC
Approved: Aug 22, 2003 | RLD: No | RS: No | Type: DISCN